FAERS Safety Report 19771799 (Version 2)
Quarter: 2021Q3

REPORT INFORMATION
  Report Type: Spontaneous
  Country: IT (occurrence: IT)
  Receive Date: 20210831
  Receipt Date: 20210831
  Transmission Date: 20211014
  Serious: Yes (Death)
  Sender: FDA-Public Use
  Company Number: IT-MYLANLABS-2021M1057454

PATIENT
  Age: 67 Year
  Sex: Female

DRUGS (3)
  1. FLUOROURACIL. [Suspect]
     Active Substance: FLUOROURACIL
     Indication: PANCREATIC CARCINOMA
     Dosage: 1920 MILLIGRAM, CYCLE
     Route: 013
     Dates: start: 20210121, end: 20210310
  2. OXALIPLATIN. [Suspect]
     Active Substance: OXALIPLATIN
     Indication: PANCREATIC CARCINOMA
     Dosage: 68 MILLIGRAM, CYCLE
     Route: 013
     Dates: start: 20210121, end: 20210310
  3. IRINOTECAN [Suspect]
     Active Substance: IRINOTECAN
     Indication: PANCREATIC CARCINOMA
     Dosage: 120 MILLIGRAM, CYCLE
     Route: 013
     Dates: start: 20210121, end: 20210310

REACTIONS (3)
  - Off label use [Unknown]
  - Pancreatitis necrotising [Fatal]
  - Splenic artery thrombosis [Fatal]

NARRATIVE: CASE EVENT DATE: 20210314
